FAERS Safety Report 7158997-5 (Version None)
Quarter: 2010Q4

REPORT INFORMATION
  Report Type: 
  Country: None (occurrence: None)
  Receive Date: 20101130
  Receipt Date: 20101115
  Transmission Date: 20110411
  Serious: Yes (Hospitalization)
  Sender: FDA-Public Use
  Company Number: AUR-APL-2010-02903

PATIENT
  Age: 75 Year
  Sex: Female
  Weight: 60 kg

DRUGS (5)
  1. CITALOPRAM [Suspect]
     Indication: NORMAL PRESSURE HYDROCEPHALUS
     Dosage: 20MG - TABLET
     Dates: start: 20080201, end: 20081201
  2. RAMIPRIL [Suspect]
     Indication: HYPERTENSION
     Dosage: 10MG - ORAL
     Route: 048
     Dates: start: 20060601
  3. BISOPROLOL FUMARATE AND HYDROCHLOROTHIAZIDE [Suspect]
     Indication: HYPERTENSION
     Dosage: 5MG/12.5MG - BID - ORAL
     Route: 048
     Dates: start: 20060601, end: 20081201
  4. METFORMIN HCL [Concomitant]
  5. MELPERONE [Concomitant]

REACTIONS (8)
  - GASTROINTESTINAL HAEMORRHAGE [None]
  - GENERAL PHYSICAL HEALTH DETERIORATION [None]
  - HYPOKALAEMIA [None]
  - HYPONATRAEMIA [None]
  - LEUKOARAIOSIS [None]
  - NORMAL PRESSURE HYDROCEPHALUS [None]
  - OSTEOPOROSIS [None]
  - TYPE 2 DIABETES MELLITUS [None]
